FAERS Safety Report 8803363 (Version 1)
Quarter: 2012Q4

REPORT INFORMATION
  Report Type: 
  Country: US (occurrence: US)
  Receive Date: 20120924
  Receipt Date: 20120924
  Transmission Date: 20130627
  Serious: Yes (Other)
  Sender: FDA-Public Use
  Company Number: US-GENZYME-CERZ-1002591

PATIENT
  Age: 26 None
  Sex: Female

DRUGS (1)
  1. CEREZYME [Suspect]
     Indication: GAUCHER^S DISEASE
     Dosage: 3200 U, q3w
     Route: 042
     Dates: start: 20041117, end: 201205

REACTIONS (2)
  - Pregnancy [Unknown]
  - Abortion spontaneous [Unknown]
